FAERS Safety Report 9567006 (Version 1)
Quarter: 2013Q3

REPORT INFORMATION
  Report Type: Spontaneous
  Country: US (occurrence: US)
  Receive Date: 20130930
  Receipt Date: 20130930
  Transmission Date: 20140515
  Serious: No
  Sender: FDA-Public Use
  Company Number: US-AMGEN-USASP2012061149

PATIENT
  Age: 57 Year
  Sex: Male
  Weight: 81.63 kg

DRUGS (12)
  1. ENBREL [Suspect]
     Indication: PRODUCT USED FOR UNKNOWN INDICATION
     Dosage: 50 MG, QWK
     Route: 058
  2. MULTIVITAMIN                       /00097801/ [Concomitant]
     Dosage: UNK
  3. CALCIUM [Concomitant]
     Dosage: 500 MG, UNK
  4. ENALAPRIL [Concomitant]
     Dosage: 5 MG, UNK
  5. LYRICA [Concomitant]
     Dosage: 50 MG, UNK
  6. PREDNISONE [Concomitant]
     Dosage: 1 MG, UNK
  7. SIMVASTATIN [Concomitant]
     Dosage: 5 MG, UNK
  8. CYMBALTA [Concomitant]
     Dosage: 20 MG, UNK
  9. METHOTREXATE [Concomitant]
     Dosage: 2.5 MG, UNK
  10. TYLENOL                            /00020001/ [Concomitant]
     Dosage: UNK
  11. FOLIC ACID [Concomitant]
     Dosage: UNK
  12. ASA [Concomitant]
     Dosage: 81 MG, UNK

REACTIONS (1)
  - Therapeutic response decreased [Unknown]
